FAERS Safety Report 4667983-6 (Version None)
Quarter: 2005Q2

REPORT INFORMATION
  Report Type: 
  Country: None (occurrence: None)
  Receive Date: 20050519
  Receipt Date: 20050512
  Transmission Date: 20051028
  Serious: Yes (Hospitalization)
  Sender: FDA-Public Use
  Company Number: AWBNIASPAND2004-78

PATIENT
  Age: 86 Year
  Sex: Female

DRUGS (8)
  1. NIASPAN [Suspect]
     Indication: DYSLIPIDAEMIA
     Dosage: 1000 MG QD PO
     Route: 048
  2. SIMVASTATIN [Concomitant]
  3. CLOPIDOGREL BISULFATE [Concomitant]
  4. AMLODIPINE [Concomitant]
  5. MOLSIDOMINE [Concomitant]
  6. BENZTHIAZIDE TRIAMTERENE [Concomitant]
  7. LISINOPRIL [Concomitant]
  8. METROPOLOL SUCCINATE [Concomitant]

REACTIONS (1)
  - CARDIAC DISORDER [None]
